FAERS Safety Report 10846328 (Version 2)
Quarter: 2015Q2

REPORT INFORMATION
  Report Type: Report from Study
  Country: US (occurrence: US)
  Receive Date: 20150220
  Receipt Date: 20150407
  Transmission Date: 20150821
  Serious: No
  Sender: FDA-Public Use
  Company Number: PHEH2015US003121

PATIENT
  Age: 47 Year
  Sex: Female
  Weight: 76.64 kg

DRUGS (1)
  1. GILENYA [Suspect]
     Active Substance: FINGOLIMOD HYDROCHLORIDE
     Indication: MULTIPLE SCLEROSIS
     Dosage: 0.5 MG, QD (1 CAPSULE AT BEDTIME)
     Route: 048
     Dates: start: 20140624

REACTIONS (15)
  - Ligament sprain [Unknown]
  - Chest discomfort [Unknown]
  - Blood pressure decreased [Unknown]
  - Presbyopia [Unknown]
  - Lacrimation increased [Unknown]
  - Hyperventilation [Unknown]
  - Dyspnoea [Unknown]
  - Fatigue [Unknown]
  - Stress [Unknown]
  - Overweight [Unknown]
  - Anxiety [Not Recovered/Not Resolved]
  - Hypoaesthesia [Unknown]
  - Feeling abnormal [Unknown]
  - Depression [Unknown]
  - Dizziness [Unknown]

NARRATIVE: CASE EVENT DATE: 20150318
